FAERS Safety Report 7379870-3 (Version None)
Quarter: 2011Q1

REPORT INFORMATION
  Report Type: 
  Country: None (occurrence: None)
  Receive Date: 20110329
  Receipt Date: 20110303
  Transmission Date: 20110831
  Serious: No
  Sender: FDA-Public Use
  Company Number: US-B.I. PHARMACEUTICALS,INC./RIDGEFIELD-2011-BP-06353BP

PATIENT
  Sex: Female

DRUGS (2)
  1. COMBIVENT [Suspect]
     Dosage: 8 PUF
     Route: 055
     Dates: start: 20110226, end: 20110228
  2. DOXYCILLIN [Concomitant]
     Indication: LUNG INFECTION
     Dosage: 200 MG
     Route: 048
     Dates: start: 20110226

REACTIONS (4)
  - GLOSSITIS [None]
  - TONGUE DISORDER [None]
  - APHAGIA [None]
  - TONGUE DISCOLOURATION [None]
